FAERS Safety Report 25100332 (Version 1)
Quarter: 2025Q1

REPORT INFORMATION
  Report Type: Spontaneous
  Country: KR (occurrence: KR)
  Receive Date: 20250320
  Receipt Date: 20250320
  Transmission Date: 20250408
  Serious: Yes (Other)
  Sender: PFIZER
  Company Number: KR-PFIZER INC-202500059659

PATIENT
  Age: 16 Year
  Sex: Male

DRUGS (1)
  1. VINCRISTINE SULFATE [Suspect]
     Active Substance: VINCRISTINE SULFATE
     Indication: Acute lymphocytic leukaemia recurrent
     Dosage: 2 MG, 1X/DAY
     Dates: start: 20220512

REACTIONS (1)
  - Neuropathy peripheral [Recovered/Resolved]

NARRATIVE: CASE EVENT DATE: 20220517
